FAERS Safety Report 5264842-5 (Version None)
Quarter: 2007Q1

REPORT INFORMATION
  Report Type: 
  Country: None (occurrence: None)
  Receive Date: 20070314
  Receipt Date: 20070313
  Transmission Date: 20070707
  Serious: Yes (Hospitalization)
  Sender: FDA-Public Use
  Company Number: FR-GLAXOSMITHKLINE-B0457580A

PATIENT
  Age: 68 Year
  Sex: Male
  Weight: 63 kg

DRUGS (7)
  1. AMOXICILLIN [Suspect]
     Indication: DENTAL DISORDER PROPHYLAXIS
     Dosage: 1G PER DAY
     Route: 048
     Dates: start: 20070122, end: 20070126
  2. NEURONTIN [Concomitant]
     Dosage: 300MG TWICE PER DAY
     Route: 048
  3. RENAGEL [Concomitant]
     Dosage: 800MG THREE TIMES PER DAY
     Route: 048
  4. ALLOPURINOL [Concomitant]
     Indication: GOUT
     Dosage: 100MG PER DAY
     Route: 048
  5. KAYEXALATE [Concomitant]
     Dosage: .5UNIT TWICE PER DAY
     Route: 048
  6. LANSOYL [Concomitant]
  7. CALCIUM 500 [Concomitant]
     Dosage: 1TAB THREE TIMES PER DAY
     Route: 048

REACTIONS (5)
  - ASTERIXIS [None]
  - CONFUSIONAL STATE [None]
  - DEPRESSED LEVEL OF CONSCIOUSNESS [None]
  - ENCEPHALOPATHY [None]
  - OVERDOSE [None]
